FAERS Safety Report 18246934 (Version 1)
Quarter: 2020Q3

REPORT INFORMATION
  Report Type: Spontaneous
  Country: US (occurrence: US)
  Receive Date: 20200909
  Receipt Date: 20200909
  Transmission Date: 20201103
  Serious: Yes (Other)
  Sender: FDA-Public Use
  Company Number: None

PATIENT
  Age: 67 Year
  Sex: Male
  Weight: 99 kg

DRUGS (2)
  1. REMDESIVIR 100MG/10ML [Suspect]
     Active Substance: REMDESIVIR
     Indication: COVID-19 PNEUMONIA
     Route: 042
     Dates: start: 20200828, end: 20200905
  2. REMDESIVIR 100MG/10ML [Suspect]
     Active Substance: REMDESIVIR
     Indication: COVID-19 PNEUMONIA
     Route: 042
     Dates: start: 20200828, end: 20200828

REACTIONS (2)
  - Blood creatinine increased [None]
  - Condition aggravated [None]

NARRATIVE: CASE EVENT DATE: 20200902
